FAERS Safety Report 4319076-5 (Version None)
Quarter: 2004Q1

REPORT INFORMATION
  Report Type: 
  Country: None (occurrence: None)
  Receive Date: 20040316
  Receipt Date: 20040305
  Transmission Date: 20041129
  Serious: Yes (Death)
  Sender: FDA-Public Use
  Company Number: 2004PK00428

PATIENT
  Age: 58 Year
  Sex: Female
  Weight: 47 kg

DRUGS (9)
  1. NEXIUM [Suspect]
     Indication: PROPHYLAXIS AGAINST GASTROINTESTINAL ULCER
     Dosage: 40 MG DAILY PO
     Route: 048
     Dates: start: 20040122
  2. BELOC ZOK [Suspect]
     Indication: HYPERTENSION
     Dosage: 100 MG DAILY PO
     Route: 048
     Dates: end: 20040206
  3. VELCADE [Suspect]
     Indication: MULTIPLE MYELOMA
     Dosage: 3.5 MG DAILY IV
     Route: 042
     Dates: start: 20040130, end: 20040206
  4. DEROXAT [Suspect]
     Indication: DEPRESSION
     Dosage: 20 MG DAILY PO
     Route: 048
     Dates: start: 19990101
  5. VFEND [Suspect]
     Indication: PYREXIA
     Dosage: 200 MG IV
     Route: 042
     Dates: start: 20040203, end: 20040206
  6. VALTREX [Concomitant]
  7. RECORMON [Concomitant]
  8. ZYLORIC [Concomitant]
  9. MOTILIUM [Concomitant]

REACTIONS (22)
  - ANAEMIA [None]
  - ANURIA [None]
  - ASPARTATE AMINOTRANSFERASE INCREASED [None]
  - ATRIAL FIBRILLATION [None]
  - C-REACTIVE PROTEIN INCREASED [None]
  - CHILLS [None]
  - COMA [None]
  - DISSEMINATED INTRAVASCULAR COAGULATION [None]
  - DRUG INTERACTION [None]
  - ELECTROLYTE IMBALANCE [None]
  - GAMMA-GLUTAMYLTRANSFERASE INCREASED [None]
  - HEPATIC ENZYME INCREASED [None]
  - HYPOTENSION [None]
  - LIVER DISORDER [None]
  - METABOLIC ACIDOSIS [None]
  - MULTIPLE MYELOMA [None]
  - OVERDOSE [None]
  - PYREXIA [None]
  - RENAL FAILURE [None]
  - SOMNOLENCE [None]
  - THROMBOCYTOPENIA [None]
  - VENTRICULAR FIBRILLATION [None]
